FAERS Safety Report 14318375 (Version 6)
Quarter: 2018Q1

REPORT INFORMATION
  Report Type: Spontaneous
  Country: US (occurrence: US)
  Receive Date: 20171222
  Receipt Date: 20180206
  Transmission Date: 20180509
  Serious: No
  Sender: FDA-Public Use
  Company Number: US-GLAXOSMITHKLINE-US2017197754

PATIENT
  Sex: Female

DRUGS (19)
  1. FLOVENT DISKUS [Suspect]
     Active Substance: FLUTICASONE PROPIONATE
     Dosage: UNK
  2. PREDNISONE TABLET [Concomitant]
     Active Substance: PREDNISONE
  3. CLINDAMYCIN. [Concomitant]
     Active Substance: CLINDAMYCIN
  4. LORATADINE. [Concomitant]
     Active Substance: LORATADINE
  5. PREDNISONE EYE DROPS [Concomitant]
     Active Substance: PREDNISONE
  6. RECLAST [Concomitant]
     Active Substance: ZOLEDRONIC ACID
  7. ACYCLOVIR. [Concomitant]
     Active Substance: ACYCLOVIR
  8. ATORVASTATIN [Concomitant]
     Active Substance: ATORVASTATIN
  9. ALBUTEROL + IPRATROPIUM [Concomitant]
     Active Substance: ALBUTEROL\IPRATROPIUM
  10. ANORO ELLIPTA [Concomitant]
     Active Substance: UMECLIDINIUM BROMIDE\VILANTEROL TRIFENATATE
  11. ASPIRIN 81 [Concomitant]
     Active Substance: ASPIRIN
  12. KLOR-CON [Concomitant]
     Active Substance: POTASSIUM CHLORIDE
  13. SYNTHROID [Concomitant]
     Active Substance: LEVOTHYROXINE SODIUM
  14. FUROSEMIDE. [Concomitant]
     Active Substance: FUROSEMIDE
  15. FLOVENT DISKUS [Suspect]
     Active Substance: FLUTICASONE PROPIONATE
     Dosage: UNK
  16. DOXYCYCLINE. [Concomitant]
     Active Substance: DOXYCYCLINE
  17. FLOVENT DISKUS [Suspect]
     Active Substance: FLUTICASONE PROPIONATE
     Indication: CHRONIC OBSTRUCTIVE PULMONARY DISEASE
     Dosage: 2 PUFF(S), BID
     Route: 055
     Dates: start: 2016
  18. FLOVENT DISKUS [Suspect]
     Active Substance: FLUTICASONE PROPIONATE
     Dosage: UNK
  19. COMBIVENT [Concomitant]
     Active Substance: ALBUTEROL SULFATE\IPRATROPIUM BROMIDE

REACTIONS (5)
  - Drug ineffective [Recovered/Resolved]
  - Underdose [Unknown]
  - Product quality issue [Unknown]
  - Dyspnoea [Recovered/Resolved]
  - Product use in unapproved indication [Unknown]
